FAERS Safety Report 18304168 (Version 2)
Quarter: 2021Q1

REPORT INFORMATION
  Report Type: Spontaneous
  Country: CA (occurrence: CA)
  Receive Date: 20200924
  Receipt Date: 20210223
  Transmission Date: 20210419
  Serious: Yes (Hospitalization)
  Sender: FDA-Public Use
  Company Number: CA-LUPIN PHARMACEUTICALS INC.-2020-06154

PATIENT
  Age: 52 Year
  Sex: Female

DRUGS (8)
  1. METHAZOLAMIDE. [Suspect]
     Active Substance: METHAZOLAMIDE
     Indication: PERIORBITAL CELLULITIS
     Dosage: 50 MILLIGRAM, TID
     Route: 048
  2. METRONIDAZOLE. [Concomitant]
     Active Substance: METRONIDAZOLE
     Indication: ANTIBIOTIC THERAPY
     Dosage: 500 MILLIGRAM, TID (EVERY 8?HOUR, OVER A 3?WEEK PERIOD)
     Route: 042
  3. VANCOMYCIN [Suspect]
     Active Substance: VANCOMYCIN
     Indication: PERIORBITAL CELLULITIS
     Dosage: 14 MILLIGRAM PER MILLILITRE, BID
     Route: 047
  4. VANCOMYCIN [Suspect]
     Active Substance: VANCOMYCIN
     Dosage: 1 GRAM, BID (EVERY 12?HOUR)
     Route: 042
  5. MOXIFLOXACIN HCL [Suspect]
     Active Substance: MOXIFLOXACIN
     Indication: PERIORBITAL CELLULITIS
     Dosage: UNK UNK, BID, OPHTHALMIC SOLUTION
     Route: 047
  6. MOXIFLOXACIN HCL [Suspect]
     Active Substance: MOXIFLOXACIN
     Dosage: 400 MILLIGRAM, QD
     Route: 048
  7. CIPROFLOXACIN. [Concomitant]
     Active Substance: CIPROFLOXACIN
     Dosage: 400 MILLIGRAM, BID (EVERY 12?HOUR)
     Route: 042
  8. CIPROFLOXACIN. [Concomitant]
     Active Substance: CIPROFLOXACIN
     Indication: ANTIBIOTIC THERAPY
     Dosage: 400 MILLIGRAM, BID (EVERY 12?HOUR)
     Route: 042

REACTIONS (2)
  - Drug intolerance [Unknown]
  - Pyrexia [Recovered/Resolved]
